FAERS Safety Report 4554322-4 (Version None)
Quarter: 2005Q1

REPORT INFORMATION
  Report Type: 
  Country: None (occurrence: None)
  Receive Date: 20041230
  Receipt Date: 20040712
  Transmission Date: 20050727
  Serious: Yes (Hospitalization)
  Sender: FDA-Public Use
  Company Number: 04-07-1022

PATIENT
  Age: 47 Year
  Sex: Female

DRUGS (1)
  1. CLOZAPINE [Suspect]
     Dosage: 200MG QD ORAL
     Route: 048
     Dates: start: 20040301, end: 20040501

REACTIONS (1)
  - PSYCHIATRIC SYMPTOM [None]
